FAERS Safety Report 21812691 (Version 4)
Quarter: 2023Q1

REPORT INFORMATION
  Report Type: Report from Study
  Country: US (occurrence: US)
  Receive Date: 20230103
  Receipt Date: 20230216
  Transmission Date: 20230418
  Serious: Yes (Hospitalization, Other)
  Sender: FDA-Public Use
  Company Number: US-GW PHARMA-2022-US-038707

PATIENT
  Age: 11 Year
  Sex: Male
  Weight: 37 kg

DRUGS (24)
  1. EPIDIOLEX [Suspect]
     Active Substance: CANNABIDIOL
     Indication: Lennox-Gastaut syndrome
     Dosage: 5.4 MILLILITER
     Route: 048
     Dates: start: 202204
  2. EPIDIOLEX [Suspect]
     Active Substance: CANNABIDIOL
     Dosage: 5.4 MILLILITER
     Route: 048
     Dates: start: 201812
  3. EPIDIOLEX [Suspect]
     Active Substance: CANNABIDIOL
     Dosage: 200 MILLIGRAM, BID
     Route: 048
     Dates: start: 20221205
  4. CLOBAZAM [Concomitant]
     Active Substance: CLOBAZAM
     Indication: Product used for unknown indication
     Dosage: 12.5 MILLIGRAM, BID
  5. CLOBAZAM [Concomitant]
     Active Substance: CLOBAZAM
     Dosage: 6 MILLILITER, BID
     Route: 048
  6. KEPPRA [Concomitant]
     Active Substance: LEVETIRACETAM
     Indication: Product used for unknown indication
     Dosage: 600 MILLIGRAM, BID
  7. TOPIRAMATE [Concomitant]
     Active Substance: TOPIRAMATE
     Indication: Product used for unknown indication
     Dosage: UNK
  8. CUVPOSA [GLYCOPYRRONIUM] [Concomitant]
     Indication: Product used for unknown indication
     Dosage: UNK
  9. DIAZEPAM [Concomitant]
     Active Substance: DIAZEPAM
     Indication: Product used for unknown indication
     Dosage: 10 MILLIGRAM
     Route: 054
  10. ALBUTEROL SULFATE [Concomitant]
     Active Substance: ALBUTEROL SULFATE
     Indication: Product used for unknown indication
     Dosage: 3 MILLILITER, TID
     Dates: start: 20221208
  11. BACLOFEN [Concomitant]
     Active Substance: BACLOFEN
     Indication: Product used for unknown indication
     Dosage: 0.5 TAB, TID
     Dates: start: 20221205
  12. CEFTRIAXONE [Concomitant]
     Active Substance: CEFTRIAXONE
     Indication: Product used for unknown indication
     Dosage: UNK
     Dates: start: 20221208
  13. GLYCOPYRROLATE [Concomitant]
     Active Substance: GLYCOPYRROLATE
     Indication: Product used for unknown indication
     Dosage: 1 MILLIGRAM
     Dates: start: 20221205
  14. OSELTAMIVIR [Concomitant]
     Active Substance: OSELTAMIVIR
     Indication: Product used for unknown indication
     Dosage: UNK
  15. LEVETIRACETAM [Concomitant]
     Active Substance: LEVETIRACETAM
     Indication: Product used for unknown indication
     Dosage: UNK
     Dates: start: 20221205
  16. PANTOPRAZOLE [Concomitant]
     Active Substance: PANTOPRAZOLE
     Indication: Product used for unknown indication
     Dosage: UNK
     Dates: start: 20221205
  17. TOPIRAMATE [Concomitant]
     Active Substance: TOPIRAMATE
     Indication: Product used for unknown indication
     Dosage: 150 MILLIGRAM, BID
     Dates: start: 20221205
  18. TOPIRAMATE [Concomitant]
     Active Substance: TOPIRAMATE
     Dosage: 6 MILLILITER, BID
     Route: 048
  19. VANCOMYCIN [Concomitant]
     Active Substance: VANCOMYCIN
     Indication: Product used for unknown indication
     Dosage: UNK
     Dates: start: 20221205
  20. CEFDINIR [Concomitant]
     Active Substance: CEFDINIR
     Indication: Product used for unknown indication
     Dosage: 5.25 MILLILITER, BID
     Route: 048
  21. IBUPROFEN [Concomitant]
     Active Substance: IBUPROFEN
     Indication: Product used for unknown indication
     Dosage: 15 MILLILITER
     Route: 048
  22. OMEPRAZOLE [Concomitant]
     Active Substance: OMEPRAZOLE
     Indication: Product used for unknown indication
     Dosage: 20 MILLIGRAM, BID
  23. MIRALAX [Concomitant]
     Active Substance: POLYETHYLENE GLYCOL 3350
     Indication: Constipation
     Dosage: 9.5 MILLIGRAM, QD
  24. SODIUM CHLORIDE [Concomitant]
     Active Substance: SODIUM CHLORIDE
     Indication: Product used for unknown indication
     Dosage: 3 MILLILITER, TID

REACTIONS (9)
  - Pyrexia [Recovered/Resolved]
  - Influenza [Recovered/Resolved]
  - Acute respiratory failure [Recovered/Resolved]
  - Unresponsive to stimuli [Unknown]
  - Seizure [Recovered/Resolved]
  - Lethargy [Recovered/Resolved]
  - Mental status changes [Recovered/Resolved]
  - Pneumonia [Unknown]
  - Sleep disorder [Recovered/Resolved]

NARRATIVE: CASE EVENT DATE: 20221205
